FAERS Safety Report 4477914-X (Version None)
Quarter: 2004Q4

REPORT INFORMATION
  Report Type: 
  Country: None (occurrence: None)
  Receive Date: 20041014
  Receipt Date: 20041004
  Transmission Date: 20050328
  Serious: Yes (Other)
  Sender: FDA-Public Use
  Company Number: GB-2004-032883

PATIENT
  Age: 25 Year
  Sex: Female

DRUGS (1)
  1. YASMIN [Suspect]
     Indication: ENDOMETRIOSIS
     Dosage: 1TAB(S), 1X/DAY, ORAL
     Route: 048
     Dates: start: 20040910, end: 20040913

REACTIONS (4)
  - CHEST DISCOMFORT [None]
  - MALAISE [None]
  - OEDEMA PERIPHERAL [None]
  - SKIN DISORDER [None]
